FAERS Safety Report 6209533-9 (Version None)
Quarter: 2009Q2

REPORT INFORMATION
  Report Type: 
  Country: None (occurrence: None)
  Receive Date: 20090601
  Receipt Date: 20090522
  Transmission Date: 20091009
  Serious: Yes (Other)
  Sender: FDA-Public Use
  Company Number: US-TEVA-196126USA

PATIENT
  Sex: Female

DRUGS (3)
  1. ZOLPIDEM TARTRATE 5 + 10 MG TABLETS [Suspect]
  2. ZOLPIDEM TARTRATE [Suspect]
     Indication: SLEEP DISORDER
  3. ZOLPIDEM TARTRATE [Suspect]

REACTIONS (2)
  - DRUG INEFFECTIVE [None]
  - OVARIAN CANCER [None]
